FAERS Safety Report 8992987 (Version 2)
Quarter: 2013Q3

REPORT INFORMATION
  Report Type: Spontaneous
  Country: CH (occurrence: CH)
  Receive Date: 20130102
  Receipt Date: 20130905
  Transmission Date: 20140515
  Serious: Yes (Other)
  Sender: FDA-Public Use
  Company Number: PHHY2012CH121602

PATIENT
  Age: 2 Month
  Sex: Female
  Weight: 3 kg

DRUGS (1)
  1. SANDIMMUNE NEORAL [Suspect]
     Dosage: 315.8 MG/KG, UNK
     Route: 048

REACTIONS (3)
  - Blood pressure systolic increased [Unknown]
  - Toxicity to various agents [Unknown]
  - Accidental overdose [Unknown]
